FAERS Safety Report 18279385 (Version 1)
Quarter: 2020Q3

REPORT INFORMATION
  Report Type: Spontaneous
  Country: US (occurrence: US)
  Receive Date: 20200917
  Receipt Date: 20200917
  Transmission Date: 20201103
  Serious: No
  Sender: FDA-Public Use
  Company Number: US-BAYER-2020-201421

PATIENT
  Sex: Female

DRUGS (1)
  1. MIRALAX [Suspect]
     Active Substance: POLYETHYLENE GLYCOL 3350
     Indication: GASTROINTESTINAL DISORDER
     Dosage: I TOOK IT UP TO THE 2ND LINE
     Route: 048

REACTIONS (3)
  - Abdominal distension [Unknown]
  - Flatulence [Unknown]
  - Incorrect dose administered [Unknown]
